FAERS Safety Report 25617482 (Version 1)
Quarter: 2025Q3

REPORT INFORMATION
  Report Type: Spontaneous
  Country: US (occurrence: US)
  Receive Date: 20250729
  Receipt Date: 20250729
  Transmission Date: 20251020
  Serious: No
  Sender: BAYER HEALTHCARE PHARMACEUTICALS INC.
  Company Number: US-BAYER-2025A098759

PATIENT
  Age: 45 Year
  Sex: Female

DRUGS (2)
  1. MIRENA [Suspect]
     Active Substance: LEVONORGESTREL
     Indication: Intrauterine contraception
     Dosage: 20?G/DAY
     Route: 015
     Dates: start: 202209
  2. STELARA [Concomitant]
     Active Substance: USTEKINUMAB
     Route: 042

REACTIONS (4)
  - Rash macular [None]
  - Pruritus [None]
  - Skin burning sensation [None]
  - Dry skin [None]

NARRATIVE: CASE EVENT DATE: 20250601
